FAERS Safety Report 11323425 (Version 2)
Quarter: 2015Q3

REPORT INFORMATION
  Report Type: Spontaneous
  Country: IT (occurrence: IT)
  Receive Date: 20150730
  Receipt Date: 20150914
  Transmission Date: 20151125
  Serious: Yes (Death)
  Sender: FDA-Public Use
  Company Number: IT-TEVA-580622ACC

PATIENT
  Age: 65 Year
  Sex: Male

DRUGS (4)
  1. ENDOXAN BAXTER - 1 G POLVERE PER SOLUZIONE INIETTABILE [Suspect]
     Active Substance: CYCLOPHOSPHAMIDE
     Indication: B-CELL LYMPHOMA
     Dosage: 1313 MG CYCLICAL, POWDER FOR SOLUTION FOR INJECTION
     Route: 042
     Dates: start: 20150626, end: 20150626
  2. MABTHERA [Suspect]
     Active Substance: RITUXIMAB
     Indication: B-CELL LYMPHOMA
     Dosage: 90 MG CYCLICAL
     Route: 042
     Dates: start: 20150629, end: 20150629
  3. VINCRISTINE SULFATE. [Suspect]
     Active Substance: VINCRISTINE SULFATE
     Indication: B-CELL LYMPHOMA
     Dosage: 2 MG CYCLICAL
     Route: 042
     Dates: start: 20150626, end: 20150626
  4. ADRIBLASTINA - 50 MG/25 ML SOLUZIONE INIETTABILE [Suspect]
     Active Substance: DOXORUBICIN HYDROCHLORIDE
     Indication: B-CELL LYMPHOMA
     Dosage: 87 MG CYCLICAL
     Route: 042
     Dates: start: 20150626, end: 20150626

REACTIONS (6)
  - Febrile neutropenia [Fatal]
  - Septic shock [Fatal]
  - Pneumonia [Fatal]
  - Anuria [Fatal]
  - Respiratory failure [Fatal]
  - Circulatory collapse [Fatal]

NARRATIVE: CASE EVENT DATE: 20150705
